FAERS Safety Report 5843841-6 (Version None)
Quarter: 2008Q3

REPORT INFORMATION
  Report Type: 
  Country: None (occurrence: None)
  Receive Date: 20080813
  Receipt Date: 20080805
  Transmission Date: 20090109
  Serious: Yes (Hospitalization, Other)
  Sender: FDA-Public Use
  Company Number: PHHY2008AT04259

PATIENT
  Sex: Male

DRUGS (5)
  1. NEORAL [Suspect]
     Indication: RENAL TRANSPLANT
     Dosage: 250MG/DAILY
     Route: 048
     Dates: start: 20071114, end: 20080507
  2. CERTICAN [Suspect]
     Indication: RENAL TRANSPLANT
     Dosage: 3MG/DAILY
     Route: 048
     Dates: start: 20071114, end: 20080115
  3. APREDNISLON [Suspect]
     Indication: RENAL TRANSPLANT
     Dosage: 20MG/DAILY
     Route: 048
     Dates: start: 20071113
  4. APREDNISLON [Suspect]
     Dosage: 10MG/DAILY
     Route: 048
  5. CORTISONE [Concomitant]
     Indication: ORGAN TRANSPLANT

REACTIONS (8)
  - ARTHRALGIA [None]
  - BLOOD CHOLESTEROL INCREASED [None]
  - BONE PAIN [None]
  - HIP SURGERY [None]
  - NECROSIS [None]
  - OEDEMA PERIPHERAL [None]
  - OSTEONECROSIS [None]
  - PROTEINURIA [None]
